FAERS Safety Report 14704474 (Version 1)
Quarter: 2018Q2

REPORT INFORMATION
  Report Type: Spontaneous
  Country: US (occurrence: US)
  Receive Date: 20180402
  Receipt Date: 20180402
  Transmission Date: 20180711
  Serious: No
  Sender: FDA-Public Use
  Company Number: US-GLAXOSMITHKLINE-US2018050797

PATIENT
  Sex: Female

DRUGS (1)
  1. FLONASE ALLERGY RELIEF [Suspect]
     Active Substance: FLUTICASONE PROPIONATE
     Indication: EAR DISCOMFORT
     Dosage: UNK

REACTIONS (5)
  - Tympanic membrane perforation [Not Recovered/Not Resolved]
  - Ear infection [Unknown]
  - Drug ineffective for unapproved indication [Unknown]
  - Ear discomfort [Unknown]
  - Off label use [Unknown]
